FAERS Safety Report 17398879 (Version 1)
Quarter: 2020Q1

REPORT INFORMATION
  Report Type: Report from Study
  Country: CA (occurrence: CA)
  Receive Date: 20200210
  Receipt Date: 20200210
  Transmission Date: 20200409
  Serious: Yes (Hospitalization)
  Sender: FDA-Public Use
  Company Number: US-ACTELION-A-NJ2017-161085

PATIENT
  Age: 56 Year
  Sex: Female

DRUGS (5)
  1. FUROSEMIDE. [Concomitant]
     Active Substance: FUROSEMIDE
  2. TRACLEER [Suspect]
     Active Substance: BOSENTAN
     Indication: PULMONARY ARTERIAL HYPERTENSION
     Route: 048
  3. ADCIRCA [Concomitant]
     Active Substance: TADALAFIL
  4. VITAMIN D [Concomitant]
     Active Substance: VITAMIN D NOS
  5. WARFARIN [Concomitant]
     Active Substance: WARFARIN

REACTIONS (10)
  - Lung disorder [Not Recovered/Not Resolved]
  - Dizziness [Recovering/Resolving]
  - Bronchitis chronic [Not Recovered/Not Resolved]
  - Fatigue [Recovering/Resolving]
  - Lower respiratory tract infection [Recovering/Resolving]
  - Asthenia [Recovering/Resolving]
  - Nasopharyngitis [Not Recovered/Not Resolved]
  - Wheezing [Not Recovered/Not Resolved]
  - Pneumonia [Unknown]
  - Oxygen saturation decreased [Recovering/Resolving]

NARRATIVE: CASE EVENT DATE: 201709
